FAERS Safety Report 8306841-2 (Version None)
Quarter: 2012Q2

REPORT INFORMATION
  Report Type: 
  Country: None (occurrence: None)
  Receive Date: 20120424
  Receipt Date: 20120420
  Transmission Date: 20120825
  Serious: No
  Sender: FDA-Public Use
  Company Number: US-PFIZER INC-2012098537

PATIENT
  Sex: Female
  Weight: 104 kg

DRUGS (6)
  1. CELEBREX [Suspect]
     Indication: BACK DISORDER
     Dosage: 200 MG, 2X/DAY
     Route: 048
     Dates: end: 20120401
  2. CELEBREX [Suspect]
     Indication: PAIN
  3. CELEBREX [Suspect]
     Indication: INTERVERTEBRAL DISC DEGENERATION
  4. NAPROXEN (ALEVE) [Concomitant]
     Indication: INTERVERTEBRAL DISC DEGENERATION
  5. NAPROXEN (ALEVE) [Concomitant]
     Indication: BACK DISORDER
     Dosage: UNK
  6. CELEBREX [Suspect]
     Indication: JOINT INJURY

REACTIONS (2)
  - HEART RATE INCREASED [None]
  - WEIGHT INCREASED [None]
